FAERS Safety Report 14923543 (Version 3)
Quarter: 2018Q2

REPORT INFORMATION
  Report Type: Spontaneous
  Country: DE (occurrence: DE)
  Receive Date: 20180522
  Receipt Date: 20180605
  Transmission Date: 20180711
  Serious: Yes (Other)
  Sender: FDA-Public Use
  Company Number: DE-PFIZER INC-2018203881

PATIENT
  Age: 37 Year
  Sex: Female

DRUGS (12)
  1. PROMETHAZINE [Concomitant]
     Active Substance: PROMETHAZINE\PROMETHAZINE HYDROCHLORIDE
     Dosage: UNK UNK, AS NEEDED
  2. OPIPRAMOL [Concomitant]
     Active Substance: OPIPRAMOL
     Dosage: UNK
  3. RISPERIDON [Suspect]
     Active Substance: RISPERIDONE
     Indication: NEGATIVE THOUGHTS
  4. ARIPIPRAZOLE. [Suspect]
     Active Substance: ARIPIPRAZOLE
     Indication: NEGATIVE THOUGHTS
     Dosage: 5 MG, DAILY
  5. PREGABALIN. [Suspect]
     Active Substance: PREGABALIN
     Dosage: REDUCED GRADUALLY
     Route: 048
  6. LORAZEPAM. [Concomitant]
     Active Substance: LORAZEPAM
     Dosage: UNK
  7. ESCITALOPRAM [Suspect]
     Active Substance: ESCITALOPRAM OXALATE
     Indication: PANIC DISORDER
     Dosage: 20 MG, 1X/DAY
     Route: 048
  8. ESCITALOPRAM [Suspect]
     Active Substance: ESCITALOPRAM OXALATE
     Dosage: 20 MG, DAILY
     Route: 048
  9. PREGABALIN. [Suspect]
     Active Substance: PREGABALIN
     Dosage: 100 MG, 1X/DAY
     Route: 048
  10. ESCITALOPRAM [Suspect]
     Active Substance: ESCITALOPRAM OXALATE
     Dosage: HALF DOSE
     Route: 048
  11. RISPERIDON [Suspect]
     Active Substance: RISPERIDONE
     Indication: DELIRIUM
     Dosage: 0.5 MG, UNK
     Route: 048
  12. ESCITALOPRAM [Suspect]
     Active Substance: ESCITALOPRAM OXALATE
     Dosage: 15 MG, DAILY
     Route: 048

REACTIONS (10)
  - Drug ineffective [Unknown]
  - Panic attack [Recovered/Resolved]
  - Haematoma [Unknown]
  - Depression [Recovered/Resolved]
  - Respiratory tract infection [Unknown]
  - Thinking abnormal [Unknown]
  - Condition aggravated [Recovered/Resolved]
  - Insomnia [Unknown]
  - Delirium [Unknown]
  - Menorrhagia [Recovered/Resolved]
